FAERS Safety Report 4876571-8 (Version None)
Quarter: 2005Q4

REPORT INFORMATION
  Report Type: 
  Country: None (occurrence: None)
  Receive Date: 20051206
  Receipt Date: 20051012
  Transmission Date: 20060501
  Serious: Yes (Hospitalization, Other)
  Sender: FDA-Public Use
  Company Number: USA0508106919

PATIENT
  Age: 72 Year
  Sex: Female

DRUGS (10)
  1. CYMBALTA [Suspect]
     Indication: ANXIETY
     Dosage: 60 MG
     Dates: start: 20050201, end: 20050701
  2. CELEBREX [Concomitant]
  3. DURAGESIC-100 [Concomitant]
  4. PERCOCET [Concomitant]
  5. PREVACID [Concomitant]
  6. IMITREX [Concomitant]
  7. ALBUTEROL [Concomitant]
  8. BACLOFEN [Concomitant]
  9. ZOCOR [Concomitant]
  10. ACTONEL [Concomitant]

REACTIONS (2)
  - SUICIDE ATTEMPT [None]
  - THROMBOCYTOPENIA [None]
